FAERS Safety Report 7208100-8 (Version None)
Quarter: 2011Q1

REPORT INFORMATION
  Report Type: 
  Country: None (occurrence: None)
  Receive Date: 20110104
  Receipt Date: 20101215
  Transmission Date: 20110831
  Serious: Yes (Other)
  Sender: FDA-Public Use
  Company Number: DE-CEPHALON-2011000010

PATIENT
  Age: 86 Year
  Sex: Female

DRUGS (1)
  1. TREANDA [Suspect]
     Indication: MULTIPLE MYELOMA

REACTIONS (3)
  - GENERALISED ERYTHEMA [None]
  - FEELING HOT [None]
  - RASH PAPULAR [None]
